FAERS Safety Report 17770023 (Version 4)
Quarter: 2021Q2

REPORT INFORMATION
  Report Type: Spontaneous
  Country: US (occurrence: US)
  Receive Date: 20200512
  Receipt Date: 20210520
  Transmission Date: 20210716
  Serious: Yes (Other)
  Sender: FDA-Public Use
  Company Number: US-PFIZER INC-2020189643

PATIENT
  Age: 57 Year
  Sex: Female

DRUGS (1)
  1. LYRICA [Suspect]
     Active Substance: PREGABALIN
     Dosage: 50 MG, 2X/DAY

REACTIONS (8)
  - Nephrolithiasis [Unknown]
  - Pain [Unknown]
  - Depressed mood [Unknown]
  - Burns third degree [Unknown]
  - Cough [Unknown]
  - Paraesthesia [Unknown]
  - Pain in extremity [Unknown]
  - Burns second degree [Unknown]
